FAERS Safety Report 10203272 (Version 1)
Quarter: 2014Q2

REPORT INFORMATION
  Report Type: Report from Study
  Country: US (occurrence: US)
  Receive Date: 20140529
  Receipt Date: 20140529
  Transmission Date: 20141212
  Serious: Yes (Other)
  Sender: FDA-Public Use
  Company Number: US-BRISTOL-MYERS SQUIBB COMPANY-20793873

PATIENT
  Age: 91 Year
  Sex: Female
  Weight: 45.35 kg

DRUGS (1)
  1. ELIQUIS [Suspect]
     Indication: CEREBROVASCULAR ACCIDENT PROPHYLAXIS
     Dates: start: 20140121

REACTIONS (11)
  - Fall [Unknown]
  - Wrist fracture [Unknown]
  - Abdominal distension [Unknown]
  - Gastrooesophageal reflux disease [Unknown]
  - Chest pain [Unknown]
  - Insomnia [Unknown]
  - Balance disorder [Unknown]
  - Ocular hyperaemia [Unknown]
  - Tinnitus [Unknown]
  - Rhinorrhoea [Unknown]
  - Weight decreased [Unknown]
